FAERS Safety Report 7332619-2 (Version None)
Quarter: 2011Q1

REPORT INFORMATION
  Report Type: 
  Country: None (occurrence: None)
  Receive Date: 20110228
  Receipt Date: 20110228
  Transmission Date: 20110831
  Serious: Yes (Other)
  Sender: FDA-Public Use
  Company Number: None

PATIENT
  Age: 57 Year
  Sex: Female
  Weight: 67.7 kg

DRUGS (3)
  1. LEVAQUIN [Suspect]
     Dates: start: 20110125, end: 20110126
  2. SEPTRA DS [Concomitant]
  3. PHENAZOPYRIDINE HCL TAB [Concomitant]

REACTIONS (2)
  - MUSCLE TIGHTNESS [None]
  - MYALGIA [None]
